FAERS Safety Report 14060649 (Version 2)
Quarter: 2017Q4

REPORT INFORMATION
  Report Type: Report from Study
  Country: GB (occurrence: GB)
  Receive Date: 20171007
  Receipt Date: 20171227
  Transmission Date: 20180321
  Serious: Yes (Hospitalization)
  Sender: FDA-Public Use
  Company Number: GB-ROCHE-2003310

PATIENT
  Sex: Male

DRUGS (1)
  1. ROACTEMRA [Suspect]
     Active Substance: TOCILIZUMAB
     Indication: RHEUMATOID ARTHRITIS
     Route: 058
     Dates: start: 20170314

REACTIONS (7)
  - Pneumonia [Unknown]
  - Malaise [Unknown]
  - Gait disturbance [Unknown]
  - Pleurisy [Unknown]
  - Emphysema [Unknown]
  - Swelling [Unknown]
  - Balance disorder [Unknown]
